FAERS Safety Report 12497220 (Version 5)
Quarter: 2016Q4

REPORT INFORMATION
  Report Type: Spontaneous
  Country: IT (occurrence: IT)
  Receive Date: 20160624
  Receipt Date: 20161114
  Transmission Date: 20170207
  Serious: Yes (Hospitalization, Other)
  Sender: FDA-Public Use
  Company Number: PHHY2016IT085235

PATIENT
  Age: 4 Year
  Sex: Male
  Weight: 16.8 kg

DRUGS (1)
  1. ILARIS [Suspect]
     Active Substance: CANAKINUMAB
     Indication: MUCKLE-WELLS SYNDROME
     Dosage: 40 MG, (2 MG/KG) EVERY 8 WEEK
     Route: 058
     Dates: start: 20160614, end: 20160614

REACTIONS (8)
  - Orthopnoea [Recovering/Resolving]
  - Lymphocyte count decreased [Unknown]
  - Pyrexia [Recovering/Resolving]
  - C-reactive protein increased [Unknown]
  - Chest pain [Recovering/Resolving]
  - Effusion [Unknown]
  - Pericarditis [Recovering/Resolving]
  - Antinuclear antibody positive [Unknown]

NARRATIVE: CASE EVENT DATE: 20160615
